FAERS Safety Report 6337222-9 (Version None)
Quarter: 2009Q3

REPORT INFORMATION
  Report Type: 
  Country: None (occurrence: None)
  Receive Date: 20090902
  Receipt Date: 20090824
  Transmission Date: 20100115
  Serious: Yes (Hospitalization, Other)
  Sender: FDA-Public Use
  Company Number: US-RANBAXY-2009US-26518

PATIENT

DRUGS (1)
  1. CEFUROXIME AXETIL [Suspect]
     Indication: DRUG USE FOR UNKNOWN INDICATION
     Dosage: 250 MG/5ML, BID 1/2 TSP
     Route: 048
     Dates: start: 20090822, end: 20090822

REACTIONS (3)
  - CRYING [None]
  - RETCHING [None]
  - VOMITING [None]
